FAERS Safety Report 9322495 (Version 1)
Quarter: 2013Q2

REPORT INFORMATION
  Report Type: Spontaneous
  Country: IT (occurrence: IT)
  Receive Date: 20130531
  Receipt Date: 20130531
  Transmission Date: 20140414
  Serious: Yes (Other)
  Sender: FDA-Public Use
  Company Number: PHHY2013IT054513

PATIENT
  Age: 59 Year
  Sex: Male

DRUGS (1)
  1. ROPINIROLE [Suspect]
     Indication: PARKINSON^S DISEASE
     Dosage: 16 MG
     Route: 048
     Dates: start: 20121115, end: 20121122

REACTIONS (2)
  - Gait disturbance [Recovered/Resolved]
  - Hypokinesia [Recovered/Resolved]
